FAERS Safety Report 7209290-3 (Version None)
Quarter: 2011Q1

REPORT INFORMATION
  Report Type: 
  Country: None (occurrence: None)
  Receive Date: 20110104
  Receipt Date: 20101230
  Transmission Date: 20110831
  Serious: Yes (Hospitalization)
  Sender: FDA-Public Use
  Company Number: B0691601A

PATIENT
  Sex: Female

DRUGS (3)
  1. AUGMENTIN '125' [Suspect]
     Indication: POSTOPERATIVE FEVER
     Dosage: 1G SINGLE DOSE
     Route: 042
     Dates: start: 20101209, end: 20101209
  2. LEXOMIL [Concomitant]
     Route: 065
  3. PARACETAMOL [Concomitant]
     Route: 065

REACTIONS (7)
  - TACHYCARDIA [None]
  - ANAPHYLACTIC SHOCK [None]
  - GENERALISED ERYTHEMA [None]
  - VASOCONSTRICTION [None]
  - VOMITING [None]
  - MALAISE [None]
  - HYPOTENSION [None]
